FAERS Safety Report 14993619 (Version 1)
Quarter: 2018Q2

REPORT INFORMATION
  Report Type: Spontaneous
  Country: SI (occurrence: SI)
  Receive Date: 20180611
  Receipt Date: 20180611
  Transmission Date: 20180711
  Serious: Yes (Other)
  Sender: FDA-Public Use
  Company Number: SI-TEVA-2018-SI-905858

PATIENT
  Age: 77 Year
  Sex: Female

DRUGS (1)
  1. NEOTIGASON [Suspect]
     Active Substance: ACITRETIN
     Indication: PITYRIASIS RUBRA PILARIS
     Dosage: 25 MILLIGRAM DAILY;
     Route: 048
     Dates: start: 20180220

REACTIONS (2)
  - Paronychia [Not Recovered/Not Resolved]
  - Ingrowing nail [Not Recovered/Not Resolved]

NARRATIVE: CASE EVENT DATE: 20180403
